FAERS Safety Report 9297480 (Version 3)
Quarter: 2013Q4

REPORT INFORMATION
  Report Type: Spontaneous
  Country: US (occurrence: US)
  Receive Date: 20130520
  Receipt Date: 20131108
  Transmission Date: 20140711
  Serious: Yes (Other)
  Sender: FDA-Public Use
  Company Number: US-BAYER-2013-060582

PATIENT
  Age: 26 Year
  Sex: Female
  Weight: 78.01 kg

DRUGS (2)
  1. MIRENA [Suspect]
     Dosage: 20 MCG/24HR, CONT
     Route: 015
     Dates: start: 200701, end: 20110421
  2. LISINOPRIL [Concomitant]
     Dosage: 10 MG, ONCE
     Route: 048

REACTIONS (8)
  - Uterine perforation [None]
  - Abdominal pain [None]
  - Medical device pain [None]
  - Injury [None]
  - Device related infection [None]
  - Genital haemorrhage [None]
  - Device dislocation [None]
  - Menorrhagia [None]
